FAERS Safety Report 17404817 (Version 1)
Quarter: 2020Q1

REPORT INFORMATION
  Report Type: Spontaneous
  Country: AU (occurrence: AU)
  Receive Date: 20200211
  Receipt Date: 20200211
  Transmission Date: 20200409
  Serious: Yes (Hospitalization)
  Sender: FDA-Public Use
  Company Number: AU-BEH-2020112647

PATIENT
  Age: 80 Year
  Sex: Female
  Weight: 80 kg

DRUGS (1)
  1. PRIVIGEN [Suspect]
     Active Substance: HUMAN IMMUNOGLOBULIN G
     Indication: THROMBOCYTOPENIA
     Dosage: 240 MILLILITER, SINGLE
     Route: 065

REACTIONS (5)
  - Feeling cold [Recovered/Resolved]
  - Blood pressure increased [Recovered/Resolved]
  - Chest pain [Recovered/Resolved]
  - Tremor [Recovered/Resolved]
  - Heart rate increased [Recovered/Resolved]
